FAERS Safety Report 9219947 (Version 2)
Quarter: 2013Q2

REPORT INFORMATION
  Report Type: Report from Study
  Country: DE (occurrence: DE)
  Receive Date: 20130409
  Receipt Date: 20130514
  Transmission Date: 20140414
  Serious: Yes (Death, Other)
  Sender: FDA-Public Use
  Company Number: DE-ROCHE-1210904

PATIENT
  Age: 82 Year
  Sex: Male

DRUGS (1)
  1. ALTEPLASE [Suspect]
     Indication: BASILAR ARTERY OCCLUSION
     Dosage: THERAPY DURATION 1 HOUR
     Route: 042

REACTIONS (2)
  - Death [Fatal]
  - Cerebral haemorrhage [Unknown]
